FAERS Safety Report 5925535-1 (Version None)
Quarter: 2008Q4

REPORT INFORMATION
  Report Type: 
  Country: None (occurrence: None)
  Receive Date: 20081021
  Receipt Date: 20081009
  Transmission Date: 20090506
  Serious: Yes (Hospitalization)
  Sender: FDA-Public Use
  Company Number: CH-ROCHE-591252

PATIENT
  Age: 37 Year
  Sex: Female

DRUGS (8)
  1. CLONAZEPAM [Suspect]
     Indication: DRUG USE FOR UNKNOWN INDICATION
     Route: 048
  2. LEVETIRACETAM [Suspect]
     Indication: FRONTAL LOBE EPILEPSY
     Route: 048
  3. LEVETIRACETAM [Suspect]
     Route: 048
  4. LEVETIRACETAM [Suspect]
     Route: 048
  5. LEVETIRACETAM [Suspect]
     Route: 048
  6. PHENYTOIN [Suspect]
     Indication: DRUG USE FOR UNKNOWN INDICATION
     Dosage: ORAL LOAD
     Route: 048
  7. PHENYTOIN [Suspect]
     Route: 048
  8. PHENYTOIN [Suspect]
     Route: 048

REACTIONS (2)
  - ACUTE STRESS DISORDER [None]
  - CONVULSION [None]
